FAERS Safety Report 8491016-7 (Version None)
Quarter: 2012Q2

REPORT INFORMATION
  Report Type: 
  Country: None (occurrence: None)
  Receive Date: 20120627
  Receipt Date: 20120619
  Transmission Date: 20120825
  Serious: Yes (Disabling)
  Sender: FDA-Public Use
  Company Number: JPI-P-022152

PATIENT
  Age: 45 Year
  Sex: Female

DRUGS (1)
  1. XYREM [Suspect]
     Indication: PRODUCT USED FOR UNKNOWN INDICATION
     Dosage: ORAL
     Route: 048
     Dates: start: 20080208

REACTIONS (3)
  - ROAD TRAFFIC ACCIDENT [None]
  - LOWER LIMB FRACTURE [None]
  - ROTATOR CUFF SYNDROME [None]
